FAERS Safety Report 7342763-1 (Version None)
Quarter: 2011Q1

REPORT INFORMATION
  Report Type: 
  Country: None (occurrence: None)
  Receive Date: 20110310
  Receipt Date: 20110304
  Transmission Date: 20110831
  Serious: Yes (Death)
  Sender: FDA-Public Use
  Company Number: US-AMGEN-USASP2011012784

PATIENT
  Sex: Male
  Weight: 95 kg

DRUGS (2)
  1. NPLATE [Suspect]
     Indication: IDIOPATHIC THROMBOCYTOPENIC PURPURA
  2. NPLATE [Suspect]
     Indication: THROMBOCYTOPENIA
     Dosage: 2 A?G/KG, ONE TIME DOSE
     Dates: start: 20101123, end: 20101123

REACTIONS (1)
  - SEPSIS [None]
